FAERS Safety Report 16585624 (Version 1)
Quarter: 2019Q3

REPORT INFORMATION
  Report Type: Spontaneous
  Country: NL (occurrence: HU)
  Receive Date: 20190717
  Receipt Date: 20190717
  Transmission Date: 20191004
  Serious: Yes (Hospitalization)
  Sender: FDA-Public Use
  Company Number: HU-FRESENIUS KABI-FK201907574

PATIENT
  Age: 45 Year
  Sex: Male

DRUGS (4)
  1. PIPERACILLIN/TAZOBACTAM (MANUFACTURER UNKNOWN) [Suspect]
     Active Substance: PIPERACILLIN SODIUM\TAZOBACTAM SODIUM
     Indication: SOFT TISSUE INFECTION
     Dosage: 4.5 G, 3X/DAY
     Route: 042
     Dates: start: 201905
  2. BENZYLPENICILLIN [Suspect]
     Active Substance: PENICILLIN G
     Indication: SOFT TISSUE INFECTION
     Dosage: 4 MILLION IU (6 TIMES PER DAY)
     Route: 042
     Dates: start: 201905
  3. IMIPENEM AND CILASTATIN [Suspect]
     Active Substance: CILASTATIN SODIUM\IMIPENEM
     Indication: PRODUCT USED FOR UNKNOWN INDICATION
     Dosage: UNK
     Route: 065
     Dates: start: 201905
  4. CLINDAMYCIN. [Suspect]
     Active Substance: CLINDAMYCIN
     Indication: SOFT TISSUE INFECTION
     Dosage: 600 MG, 3X/DAY
     Route: 042
     Dates: start: 201905

REACTIONS (2)
  - Soft tissue infection [Recovered/Resolved]
  - Condition aggravated [Recovered/Resolved]

NARRATIVE: CASE EVENT DATE: 20190519
